FAERS Safety Report 5056928-5 (Version None)
Quarter: 2006Q2

REPORT INFORMATION
  Report Type: 
  Country: None (occurrence: None)
  Receive Date: 20060620
  Receipt Date: 20050420
  Transmission Date: 20061013
  Serious: No
  Sender: FDA-Public Use
  Company Number: MK200504-0287-1

PATIENT
  Sex: Female

DRUGS (1)
  1. OPTIRAY 320 [Suspect]
     Indication: COMPUTERISED TOMOGRAM
     Dosage: 125 ML, ONE TIME, IV
     Route: 042
     Dates: start: 20050420, end: 20050420

REACTIONS (2)
  - NASAL CONGESTION [None]
  - OCULAR HYPERAEMIA [None]
